FAERS Safety Report 16754086 (Version 2)
Quarter: 2019Q3

REPORT INFORMATION
  Report Type: Spontaneous
  Country: US (occurrence: US)
  Receive Date: 20190829
  Receipt Date: 20190906
  Transmission Date: 20191005
  Serious: No
  Sender: FDA-Public Use
  Company Number: US-TEVA-2019-US-1100610

PATIENT
  Sex: Female

DRUGS (1)
  1. HYDROXYZINE HCL [Suspect]
     Active Substance: HYDROXYZINE HYDROCHLORIDE
     Indication: URTICARIA
     Dosage: THERAPY START DATE: SINCE LAST COUPLE OF WEEKS
     Route: 065

REACTIONS (4)
  - Product odour abnormal [Unknown]
  - Depressed mood [Unknown]
  - Drug ineffective [Unknown]
  - Drug hypersensitivity [Unknown]
